FAERS Safety Report 8430977-9 (Version None)
Quarter: 2012Q2

REPORT INFORMATION
  Report Type: 
  Country: None (occurrence: None)
  Receive Date: 20120612
  Receipt Date: 20120608
  Transmission Date: 20120825
  Serious: Yes (Other)
  Sender: FDA-Public Use
  Company Number: SK-AMGEN-SVKSP2012028107

PATIENT
  Sex: Female

DRUGS (1)
  1. PROLIA [Suspect]
     Indication: PRODUCT USED FOR UNKNOWN INDICATION
     Dosage: UNK
     Dates: start: 20111102

REACTIONS (20)
  - VISUAL IMPAIRMENT [None]
  - MUSCULAR WEAKNESS [None]
  - LIPOATROPHY [None]
  - DRUG ERUPTION [None]
  - SKIN ATROPHY [None]
  - CELLULITIS [None]
  - ERYTHEMA MULTIFORME [None]
  - PALPITATIONS [None]
  - BACK PAIN [None]
  - MUSCLE ATROPHY [None]
  - PIGMENTATION DISORDER [None]
  - SPINAL PAIN [None]
  - BLOOD PRESSURE FLUCTUATION [None]
  - ARTHRALGIA [None]
  - RASH [None]
  - DYSPEPSIA [None]
  - CHILLS [None]
  - MUSCULOSKELETAL PAIN [None]
  - BALANCE DISORDER [None]
  - DRY SKIN [None]
